FAERS Safety Report 9275110 (Version 2)
Quarter: 2013Q2

REPORT INFORMATION
  Report Type: Spontaneous
  Country: US (occurrence: None)
  Receive Date: 20130430
  Receipt Date: 20130514
  Transmission Date: 20140414
  Serious: Yes (Hospitalization, Other)
  Sender: FDA-Public Use
  Company Number: JPI-P-031284

PATIENT
  Age: 37 Year
  Sex: Female

DRUGS (9)
  1. XYREM [Suspect]
     Indication: CATAPLEXY
     Route: 048
     Dates: start: 201010
  2. XYREM [Suspect]
     Indication: SOMNOLENCE
     Route: 048
     Dates: start: 201010
  3. METFORMIN [Concomitant]
  4. LISINOPRIL [Concomitant]
  5. PREGABALIN [Concomitant]
  6. FINGOLIMOD [Concomitant]
  7. TOPIRAMATE [Concomitant]
  8. VITAMINS [Concomitant]
  9. ATORVASTATIN CALCIUM [Concomitant]

REACTIONS (2)
  - Hysterectomy [None]
  - Ovarian enlargement [None]
